FAERS Safety Report 25181946 (Version 1)
Quarter: 2025Q2

REPORT INFORMATION
  Report Type: Spontaneous
  Country: AU (occurrence: AU)
  Receive Date: 20250410
  Receipt Date: 20250410
  Transmission Date: 20250716
  Serious: Yes (Life-Threatening, Hospitalization, Other)
  Sender: BRISTOL MYERS SQUIBB
  Company Number: AU-BRISTOL-MYERS SQUIBB COMPANY-2025-051310

PATIENT
  Age: 45 Year
  Sex: Male

DRUGS (9)
  1. APIXABAN [Interacting]
     Active Substance: APIXABAN
     Indication: Cavernous sinus thrombosis
     Dates: start: 2018
  2. TOLVAPTAN [Interacting]
     Active Substance: TOLVAPTAN
     Indication: Congenital cystic kidney disease
     Dates: start: 2020
  3. TOLVAPTAN [Interacting]
     Active Substance: TOLVAPTAN
     Dates: start: 2020
  4. TOLVAPTAN [Interacting]
     Active Substance: TOLVAPTAN
     Dates: start: 201906
  5. TOLVAPTAN [Interacting]
     Active Substance: TOLVAPTAN
     Dates: start: 201906
  6. PERINDOPRIL [Concomitant]
     Active Substance: PERINDOPRIL
     Indication: Hypertension
  7. ATENOLOL [Concomitant]
     Active Substance: ATENOLOL
     Indication: Hypertension
  8. AMLODIPINE [Concomitant]
     Active Substance: AMLODIPINE BESYLATE
     Indication: Product used for unknown indication
  9. AMOXICILLIN\CLAVULANIC ACID [Concomitant]
     Active Substance: AMOXICILLIN\CLAVULANIC ACID
     Indication: Infection

REACTIONS (4)
  - Liver injury [Recovered/Resolved]
  - Drug interaction [Unknown]
  - Off label use [Unknown]
  - Klebsiella sepsis [Unknown]

NARRATIVE: CASE EVENT DATE: 20180101
